FAERS Safety Report 4830032-0 (Version None)
Quarter: 2005Q4

REPORT INFORMATION
  Report Type: 
  Country: None (occurrence: None)
  Receive Date: 20051115
  Receipt Date: 20051115
  Transmission Date: 20060501
  Serious: Yes (Life-Threatening, Hospitalization)
  Sender: FDA-Public Use
  Company Number: None

PATIENT
  Age: 83 Year
  Sex: Male
  Weight: 61.7 kg

DRUGS (6)
  1. GATIFLOXACIN [Suspect]
     Indication: URINARY TRACT INFECTION
     Dosage: 200MG  QD  ORAL
     Route: 048
     Dates: start: 20050711, end: 20050718
  2. METOPROLOL [Concomitant]
  3. HEPARIN SODIUM [Concomitant]
  4. DOCUSATE SODIUM [Concomitant]
  5. GOSERELIN ACETATE [Concomitant]
  6. FLUTAMIDE [Concomitant]

REACTIONS (2)
  - HYPERGLYCAEMIA [None]
  - MENTAL STATUS CHANGES [None]
